FAERS Safety Report 9820140 (Version 1)
Quarter: 2014Q1

REPORT INFORMATION
  Report Type: Spontaneous
  Country: US (occurrence: None)
  Receive Date: 20140113
  Receipt Date: 20140113
  Transmission Date: 20141002
  Serious: Yes (Other)
  Sender: FDA-Public Use
  Company Number: None

PATIENT
  Age: 20 Year
  Sex: Male
  Weight: 60.33 kg

DRUGS (1)
  1. LEVOFLOXACIN [Suspect]
     Indication: SINUSITIS
     Dosage: 1 DOSE 1 PILL 1 TIME ONLY TAKEN BY MOUTH
     Route: 048

REACTIONS (10)
  - Nightmare [None]
  - Hallucination [None]
  - Anxiety [None]
  - Panic attack [None]
  - Paranoia [None]
  - Paraesthesia [None]
  - Restlessness [None]
  - Confusional state [None]
  - Photosensitivity reaction [None]
  - Depression [None]
